FAERS Safety Report 8784161 (Version 1)
Quarter: 2012Q4

REPORT INFORMATION
  Report Type: Spontaneous
  Country: US (occurrence: None)
  Receive Date: 20120830
  Receipt Date: 20120830
  Transmission Date: 20130627
  Serious: Yes (Hospitalization, Other)
  Sender: FDA-Public Use
  Company Number: 20120522

PATIENT
  Age: 25 Year
  Sex: Male

DRUGS (1)
  1. CYCLOSPORINE [Suspect]
     Indication: IMMUNOSUPPRESSANT DRUG THERAPY

REACTIONS (9)
  - Adenovirus infection [None]
  - Tubulointerstitial nephritis [None]
  - Hyperbilirubinaemia [None]
  - Febrile neutropenia [None]
  - Renal failure acute [None]
  - Engraftment syndrome [None]
  - Cystitis haemorrhagic [None]
  - Cough [None]
  - Viraemia [None]
